FAERS Safety Report 22264673 (Version 1)
Quarter: 2023Q2

REPORT INFORMATION
  Report Type: Spontaneous
  Country: TH (occurrence: TH)
  Receive Date: 20230428
  Receipt Date: 20230428
  Transmission Date: 20230721
  Serious: Yes (Hospitalization)
  Sender: FDA-Public Use
  Company Number: TH-MYLANLABS-2023M1044626

PATIENT
  Age: 39 Year
  Sex: Male

DRUGS (5)
  1. VORICONAZOLE [Suspect]
     Active Substance: VORICONAZOLE
     Indication: Acanthamoeba keratitis
     Dosage: 300 MILLIGRAM, BID, VORICONAZOLE WAS CONTINUED FOR 1 MONTH POST-OPERATION
     Route: 048
  2. ATROPINE [Suspect]
     Active Substance: ATROPINE
     Indication: Acanthamoeba keratitis
     Dosage: UNK
     Route: 061
  3. CHLORHEXIDINE [Suspect]
     Active Substance: CHLORHEXIDINE
     Indication: Acanthamoeba keratitis
     Dosage: UNK, TAPERED SLOWLY AND DISCONTINUED THREE MONTHS AFTER OPERATION
     Route: 061
  4. MOXIFLOXACIN [Suspect]
     Active Substance: MOXIFLOXACIN
     Indication: Acanthamoeba keratitis
     Dosage: UNK, QID (4TIMES/DAY)
     Route: 061
  5. POLIHEXANIDE HYDROCHLORIDE [Suspect]
     Active Substance: POLIHEXANIDE HYDROCHLORIDE
     Indication: Acanthamoeba keratitis
     Dosage: UNK, QH (TAPERED SLOWLY AND DISCONTINUED THREE MONTHS AFTER OPERATION)
     Route: 061

REACTIONS (2)
  - Drug ineffective for unapproved indication [Unknown]
  - Off label use [Unknown]
